FAERS Safety Report 7558253-7 (Version None)
Quarter: 2011Q2

REPORT INFORMATION
  Report Type: 
  Country: None (occurrence: None)
  Receive Date: 20110620
  Receipt Date: 20110607
  Transmission Date: 20111010
  Serious: Yes (Hospitalization)
  Sender: FDA-Public Use
  Company Number: GB-MYLANLABS-2009S1017937

PATIENT
  Age: 47 Year
  Sex: Female
  Weight: 102 kg

DRUGS (7)
  1. SERETIDE [Concomitant]
     Indication: PRODUCT USED FOR UNKNOWN INDICATION
  2. SERTRALINE HYDROCHLORIDE [Suspect]
     Indication: DEPRESSION
     Route: 048
     Dates: start: 20080909, end: 20081005
  3. QUETIAPINE [Concomitant]
     Indication: PSYCHOTIC DISORDER
     Route: 048
  4. CLOZAPINE [Suspect]
     Indication: SCHIZOPHRENIA
  5. CLONAZEPAM [Concomitant]
     Indication: PSYCHOTIC DISORDER
     Route: 048
  6. LAMOTRIGINE [Concomitant]
     Indication: AFFECTIVE DISORDER
     Route: 048
  7. DEPAKOTE [Concomitant]
     Indication: AFFECTIVE DISORDER
     Route: 048

REACTIONS (6)
  - TACHYPNOEA [None]
  - TACHYCARDIA [None]
  - CARDIOMYOPATHY [None]
  - ASTHMA [None]
  - OXYGEN SATURATION DECREASED [None]
  - LOWER RESPIRATORY TRACT INFECTION [None]
